FAERS Safety Report 5464916-X (Version None)
Quarter: 2007Q3

REPORT INFORMATION
  Report Type: 
  Country: None (occurrence: None)
  Receive Date: 20070921
  Receipt Date: 20070912
  Transmission Date: 20080115
  Serious: Yes (Hospitalization, Other)
  Sender: FDA-Public Use
  Company Number: FR-PFIZER INC-2007076987

PATIENT
  Age: 51 Year
  Sex: Male

DRUGS (3)
  1. TAHOR [Suspect]
     Indication: HYPERCHOLESTEROLAEMIA
  2. IBUPROFEN [Concomitant]
  3. BACLOFEN [Concomitant]

REACTIONS (2)
  - CEREBRAL HAEMORRHAGE [None]
  - HEMIPLEGIA [None]
